FAERS Safety Report 8764157 (Version 1)
Quarter: 2012Q4

REPORT INFORMATION
  Report Type: Report from Study
  Country: US (occurrence: US)
  Receive Date: 20120831
  Receipt Date: 20120831
  Transmission Date: 20130627
  Serious: Yes (Other)
  Sender: FDA-Public Use
  Company Number: US-009507513-2011SP054331

PATIENT

DRUGS (10)
  1. VICTRELIS [Suspect]
     Indication: HEPATITIS C
     Dosage: 4 DF (200 mg), TID
     Route: 048
     Dates: start: 20111011
  2. REBETOL [Suspect]
     Dosage: UNK UNK, Unknown
  3. PEGASYS [Suspect]
     Dosage: UNK UNK, Unknown
  4. ADVIL [Concomitant]
     Dosage: UPDATE(13DEC2011)
  5. CONTROLOC [Concomitant]
     Dosage: UPDATE(13DEC2011)
  6. VISTARIL [Concomitant]
     Dosage: UPDATE(13DEC2011)
  7. GABAPENTIN [Concomitant]
     Dosage: UPDATE(13DEC2011)
  8. VENTOLIN HFA [Concomitant]
     Dosage: UPDATE(13DEC2011) VENTOLIN HFA AER
  9. ESTROGEL [Concomitant]
     Dosage: UPDATE(13DEC2011)
  10. HYDROXYCHLOROQUINE SULFATE [Concomitant]

REACTIONS (6)
  - White blood cell count decreased [Unknown]
  - Nausea [Unknown]
  - Vomiting [Unknown]
  - Influenza like illness [Unknown]
  - Diarrhoea [Unknown]
  - Medication error [Unknown]
